FAERS Safety Report 5259417-8 (Version None)
Quarter: 2007Q1

REPORT INFORMATION
  Report Type: 
  Country: None (occurrence: None)
  Receive Date: 20070308
  Receipt Date: 20070228
  Transmission Date: 20070707
  Serious: Yes (Hospitalization)
  Sender: FDA-Public Use
  Company Number: US-ABBOTT-07P-163-0360792-00

PATIENT
  Sex: Female
  Weight: 74.91 kg

DRUGS (3)
  1. HUMIRA [Suspect]
     Indication: CROHN'S DISEASE
     Route: 058
     Dates: start: 20070201, end: 20070220
  2. HUMIRA [Suspect]
     Route: 058
     Dates: start: 20070101, end: 20070101
  3. HUMIRA [Suspect]
     Route: 058
     Dates: start: 20070101, end: 20070101

REACTIONS (4)
  - CROHN'S DISEASE [None]
  - DRUG INEFFECTIVE [None]
  - GENERAL PHYSICAL HEALTH DETERIORATION [None]
  - PORTAL VEIN THROMBOSIS [None]
